FAERS Safety Report 19981219 (Version 2)
Quarter: 2021Q4

REPORT INFORMATION
  Report Type: Report from Study
  Country: CA (occurrence: CA)
  Receive Date: 20211022
  Receipt Date: 20211124
  Transmission Date: 20220303
  Serious: Yes (Hospitalization, Other)
  Sender: FDA-Public Use
  Company Number: CA-SAARTEMIS-SAC202011090214

PATIENT
  Age: 45 Year
  Sex: Male

DRUGS (11)
  1. TERIFLUNOMIDE [Suspect]
     Active Substance: TERIFLUNOMIDE
     Indication: Relapsing-remitting multiple sclerosis
     Dosage: 14 MG, QD
     Route: 048
     Dates: start: 20171025
  2. VITAMIN D NOS [Concomitant]
     Active Substance: VITAMIN D NOS
     Dosage: UNK
  3. SEROQUEL [Concomitant]
     Active Substance: QUETIAPINE FUMARATE
     Dosage: UNK
  4. TRAZODONE [Concomitant]
     Active Substance: TRAZODONE HYDROCHLORIDE
     Dosage: 50 MG
  5. VITAMIN B1 [Concomitant]
     Active Substance: THIAMINE HYDROCHLORIDE
     Dosage: UNK
  6. CYANOCOBALAMIN [Concomitant]
     Active Substance: CYANOCOBALAMIN
  7. VITAMINS NOS [Concomitant]
     Active Substance: VITAMINS
     Dosage: UNK
  8. CIALIS [Concomitant]
     Active Substance: TADALAFIL
  9. ROPINIROLE [Concomitant]
     Active Substance: ROPINIROLE
     Indication: Restless legs syndrome
     Dosage: 1 MG
  10. ROPINIROLE [Concomitant]
     Active Substance: ROPINIROLE
     Indication: Burning sensation
  11. ROPINIROLE [Concomitant]
     Active Substance: ROPINIROLE
     Indication: Paraesthesia

REACTIONS (18)
  - Fall [Not Recovered/Not Resolved]
  - Alcohol withdrawal syndrome [Unknown]
  - Multiple sclerosis relapse [Unknown]
  - Blindness unilateral [Not Recovered/Not Resolved]
  - Hemiplegia [Not Recovered/Not Resolved]
  - Diplopia [Unknown]
  - Vomiting [Unknown]
  - Nausea [Unknown]
  - Muscular weakness [Unknown]
  - Vision blurred [Unknown]
  - Paraesthesia [Unknown]
  - Mobility decreased [Not Recovered/Not Resolved]
  - Ataxia [Unknown]
  - Hypoaesthesia [Unknown]
  - Sleep disorder [Not Recovered/Not Resolved]
  - Burning sensation [Not Recovered/Not Resolved]
  - Feeling abnormal [Unknown]
  - Hepatic function abnormal [Unknown]

NARRATIVE: CASE EVENT DATE: 20200101
